FAERS Safety Report 24367927 (Version 1)
Quarter: 2024Q3

REPORT INFORMATION
  Report Type: Spontaneous
  Country: US (occurrence: US)
  Receive Date: 20240926
  Receipt Date: 20240926
  Transmission Date: 20241017
  Serious: Yes (Life-Threatening, Other)
  Sender: PFIZER
  Company Number: US-PFIZER INC-PV202400124131

PATIENT
  Age: 39 Year
  Sex: Female

DRUGS (6)
  1. LORAZEPAM [Suspect]
     Active Substance: LORAZEPAM
     Indication: Malignant catatonia
     Dosage: UNK
  2. LORAZEPAM [Suspect]
     Active Substance: LORAZEPAM
     Indication: Neuroleptic malignant syndrome
  3. DANTROLENE [Suspect]
     Active Substance: DANTROLENE
     Indication: Malignant catatonia
     Dosage: UNK
  4. DANTROLENE [Suspect]
     Active Substance: DANTROLENE
     Indication: Neuroleptic malignant syndrome
  5. ACAMPROSATE [Suspect]
     Active Substance: ACAMPROSATE
     Indication: Malignant catatonia
     Dosage: UNK
  6. KLONOPIN [Suspect]
     Active Substance: CLONAZEPAM
     Indication: Malignant catatonia
     Dosage: UNK

REACTIONS (2)
  - Drug ineffective for unapproved indication [Unknown]
  - Off label use [Unknown]
